FAERS Safety Report 6553782-7 (Version None)
Quarter: 2010Q1

REPORT INFORMATION
  Report Type: 
  Country: None (occurrence: None)
  Receive Date: 20100125
  Receipt Date: 20100125
  Transmission Date: 20100710
  Serious: Yes (Disabling)
  Sender: FDA-Public Use
  Company Number: None

PATIENT
  Sex: Female
  Weight: 79.3795 kg

DRUGS (2)
  1. CIPRO [Suspect]
     Indication: DIVERTICULUM
     Dosage: 500MG - 1 TAB TWICE DAILY
     Dates: start: 20090220
  2. CIPRO [Suspect]
     Indication: DIVERTICULUM
     Dosage: 500MG - 1 TAB TWICE DAILY
     Dates: start: 20090223

REACTIONS (2)
  - HORMONE LEVEL ABNORMAL [None]
  - TENDON DISORDER [None]
